FAERS Safety Report 26044685 (Version 1)
Quarter: 2025Q4

REPORT INFORMATION
  Report Type: Spontaneous
  Country: GB (occurrence: GB)
  Receive Date: 20251114
  Receipt Date: 20251114
  Transmission Date: 20260118
  Serious: Yes (Hospitalization)
  Sender: TEVA
  Company Number: None

PATIENT
  Age: 92 Year
  Sex: Male

DRUGS (28)
  1. TAMSULOSIN [Suspect]
     Active Substance: TAMSULOSIN
     Indication: Adverse drug reaction
     Dosage: 1 DAILY TO
     Route: 065
  2. GADOFOSVESET TRISODIUM [Concomitant]
     Active Substance: GADOFOSVESET TRISODIUM
     Indication: Product used for unknown indication
  3. RISEDRONATE SODIUM [Concomitant]
     Active Substance: RISEDRONATE SODIUM
     Indication: Product used for unknown indication
  4. ETIDRONATE DISODIUM [Concomitant]
     Active Substance: ETIDRONATE DISODIUM
     Indication: Product used for unknown indication
  5. AMILORIDE HYDROCHLORIDE\FUROSEMIDE [Concomitant]
     Active Substance: AMILORIDE HYDROCHLORIDE\FUROSEMIDE
     Indication: Product used for unknown indication
  6. FUROSEMIDE [Concomitant]
     Active Substance: FUROSEMIDE
     Indication: Product used for unknown indication
     Dosage: EACH MORNING
  7. Spironolactone + Furosemide [Concomitant]
     Indication: Product used for unknown indication
  8. Cetraben [Concomitant]
     Indication: Product used for unknown indication
     Dosage: APPLY TO LEGS AND FEET
  9. PENTOSAN POLYSULFATE SODIUM [Concomitant]
     Active Substance: PENTOSAN POLYSULFATE SODIUM
     Indication: Product used for unknown indication
  10. DICLOFENAC SODIUM [Concomitant]
     Active Substance: DICLOFENAC SODIUM
     Indication: Product used for unknown indication
  11. SCOPOLAMINE HYDROBROMIDE [Concomitant]
     Active Substance: SCOPOLAMINE HYDROBROMIDE
     Indication: Product used for unknown indication
     Dosage: 400 MICROGRAMS / 1 ML AMPOULES, 1200-2400 MCG OVER 24 HOURS
  12. FUROSEMIDE [Concomitant]
     Active Substance: FUROSEMIDE
     Indication: Product used for unknown indication
  13. ALFENTANIL [Concomitant]
     Active Substance: ALFENTANIL
     Indication: Product used for unknown indication
     Dosage: STRENGTH 1 MG / 2 ML AMPOULES?1 MG OVER 24 HOURS - [REDACTED] HAS SUPPLY AND CONFIRMED NOT USING
  14. PHENYTOIN SODIUM [Concomitant]
     Active Substance: PHENYTOIN SODIUM
     Indication: Product used for unknown indication
  15. DERMOL [Concomitant]
     Active Substance: BENZALKONIUM CHLORIDE\CHLORHEXIDINE HYDROCHLORIDE\ISOPROPYL MYRISTATE\PARAFFIN
     Indication: Product used for unknown indication
     Dosage: APPLY TO SKIN OR USE AS A SOAP SUBSTITUTE - 500
  16. Evacal-D3 [Concomitant]
     Indication: Product used for unknown indication
     Dosage: STRENGTH: 1500 MG / 400 UNIT; IN THE MORNING AND AT NIGHT
  17. SENNA [Concomitant]
     Active Substance: SENNOSIDES
     Indication: Product used for unknown indication
     Dosage: AT NIGHT
  18. PHENOBARBITAL SODIUM [Concomitant]
     Active Substance: PHENOBARBITAL SODIUM
     Indication: Product used for unknown indication
  19. OXYCODONE [Concomitant]
     Active Substance: OXYCODONE
     Indication: Pain
     Dosage: TIME INTERVAL: AS NECESSARY: STRENGTH 10 MG / 1 ML AMPOULES?DOSE 1.5-2.5 MG
     Route: 058
  20. SODIUM CHLORIDE [Concomitant]
     Active Substance: SODIUM CHLORIDE
     Indication: Product used for unknown indication
     Dosage: 10 ML AMPOULES TO BE USED AS DIRECTED
  21. OMEPRAZOLE [Concomitant]
     Active Substance: OMEPRAZOLE
     Indication: Product used for unknown indication
  22. Trelegy Ellipta 92 / 55 / 22 micrograms / dose dry powder inhaler [Concomitant]
     Indication: Product used for unknown indication
     Dosage: 92 / 55 / 22 MICROGRAMS / DOSE DRY
  23. Clinitas Carbomer [Concomitant]
     Indication: Dry eye
     Dosage: TIME INTERVAL: AS NECESSARY: APPLY ONE DROP FOUR TIMES A DAY TO BOTH EYES
  24. LEVOMEPROMAZINE [Concomitant]
     Active Substance: LEVOMEPROMAZINE
     Indication: Product used for unknown indication
     Dosage: STRENGTH: 25 MG / 1 ML AMPOULES?DOSE: 6.25-25 MG OVER 24 HOURS AS DIRECTED
  25. Solifenacin + Tamsulosin [Concomitant]
     Indication: Product used for unknown indication
  26. Triamterene + Furosemide [Concomitant]
     Indication: Product used for unknown indication
  27. MIDAZOLAM [Concomitant]
     Active Substance: MIDAZOLAM
     Indication: Product used for unknown indication
     Dosage: STRENGTH 10 MG / 2 ML AMPOULES?DOSE 10-30 MG OVER 24 HOURS AS DIRECTED
  28. PAMIDRONATE DISODIUM [Concomitant]
     Active Substance: PAMIDRONATE DISODIUM
     Indication: Product used for unknown indication

REACTIONS (2)
  - Fall [Recovered/Resolved]
  - Dizziness [Unknown]
